FAERS Safety Report 6664785-6 (Version None)
Quarter: 2010Q1

REPORT INFORMATION
  Report Type: 
  Country: None (occurrence: None)
  Receive Date: 20100330
  Receipt Date: 20100318
  Transmission Date: 20100710
  Serious: Yes (Hospitalization)
  Sender: FDA-Public Use
  Company Number: AUR-APL-2010-00827

PATIENT
  Age: 64 Year
  Sex: Male

DRUGS (4)
  1. AMOXICILLIN [Suspect]
  2. ASPIRIN [Concomitant]
  3. FENITOINE [Concomitant]
  4. STATIN (NOT SPECIFIED) [Concomitant]

REACTIONS (7)
  - ACUTE MYOCARDIAL INFARCTION [None]
  - ANAPHYLACTIC SHOCK [None]
  - CHEST PAIN [None]
  - CORONARY ARTERY THROMBOSIS [None]
  - GENERALISED ERYTHEMA [None]
  - NAUSEA [None]
  - VOMITING [None]
